FAERS Safety Report 13029934 (Version 1)
Quarter: 2016Q4

REPORT INFORMATION
  Report Type: Spontaneous
  Country: US (occurrence: US)
  Receive Date: 20161214
  Receipt Date: 20161214
  Transmission Date: 20170207
  Serious: No
  Sender: FDA-Public Use
  Company Number: None

PATIENT
  Age: 59 Year
  Sex: Male

DRUGS (1)
  1. SIMPONI ARIA [Suspect]
     Active Substance: GOLIMUMAB
     Indication: RHEUMATOID ARTHRITIS
     Dosage: 50MG/4MLS EVERY 8 WEEKS IV
     Route: 042

REACTIONS (4)
  - Fluid retention [None]
  - Fall [None]
  - Hypertension [None]
  - Laceration [None]

NARRATIVE: CASE EVENT DATE: 20161204
